FAERS Safety Report 7926337-7 (Version None)
Quarter: 2011Q4

REPORT INFORMATION
  Report Type: 
  Country: None (occurrence: None)
  Receive Date: 20111118
  Receipt Date: 20111110
  Transmission Date: 20120403
  Serious: No
  Sender: FDA-Public Use
  Company Number: US-BIOGENIDEC-2011BI030893

PATIENT
  Age: 52 Year
  Sex: Male

DRUGS (3)
  1. BETASERON [Concomitant]
     Indication: MULTIPLE SCLEROSIS
  2. BACLOFEN [Concomitant]
     Indication: MULTIPLE SCLEROSIS
  3. TYSABRI [Suspect]
     Indication: MULTIPLE SCLEROSIS
     Route: 042
     Dates: start: 20100917, end: 20110715

REACTIONS (7)
  - DYSPNOEA [None]
  - BALANCE DISORDER [None]
  - HEADACHE [None]
  - FATIGUE [None]
  - GAIT DISTURBANCE [None]
  - DRUG INEFFECTIVE [None]
  - HYPOTENSION [None]
